FAERS Safety Report 6582274-4 (Version None)
Quarter: 2010Q1

REPORT INFORMATION
  Report Type: 
  Country: None (occurrence: None)
  Receive Date: 20100216
  Receipt Date: 20091229
  Transmission Date: 20100710
  Serious: No
  Sender: FDA-Public Use
  Company Number: A0837232A

PATIENT
  Age: 32 Year
  Sex: Male

DRUGS (5)
  1. VERAMYST [Suspect]
     Indication: MULTIPLE ALLERGIES
     Route: 045
     Dates: start: 20090101, end: 20090101
  2. OMNARIS [Suspect]
     Indication: DRUG USE FOR UNKNOWN INDICATION
  3. CLARITIN [Concomitant]
  4. CIPRO [Concomitant]
  5. UNKNOWN [Concomitant]

REACTIONS (4)
  - ACNE CYSTIC [None]
  - AVOIDANT PERSONALITY DISORDER [None]
  - EMOTIONAL DISORDER [None]
  - SINUSITIS [None]
